FAERS Safety Report 12541710 (Version 2)
Quarter: 2016Q3

REPORT INFORMATION
  Report Type: Report from Study
  Country: US (occurrence: US)
  Receive Date: 20160708
  Receipt Date: 20160825
  Transmission Date: 20161109
  Serious: Yes (Hospitalization)
  Sender: FDA-Public Use
  Company Number: US-BIOGEN-2016BI00262048

PATIENT
  Age: 64 Year
  Sex: Female

DRUGS (2)
  1. KEPPRA [Concomitant]
     Active Substance: LEVETIRACETAM
     Indication: PRODUCT USED FOR UNKNOWN INDICATION
     Route: 065
  2. AVONEX [Suspect]
     Active Substance: INTERFERON BETA-1A
     Indication: MULTIPLE SCLEROSIS
     Route: 030
     Dates: start: 20160513

REACTIONS (4)
  - Injection site haemorrhage [Recovered/Resolved]
  - Duodenal ulcer perforation [Recovered/Resolved]
  - Diaphragmatic disorder [Not Recovered/Not Resolved]
  - Nosocomial infection [Unknown]

NARRATIVE: CASE EVENT DATE: 20160624
